FAERS Safety Report 22261270 (Version 1)
Quarter: 2023Q2

REPORT INFORMATION
  Report Type: Spontaneous
  Country: US (occurrence: US)
  Receive Date: 20230427
  Receipt Date: 20230427
  Transmission Date: 20230722
  Serious: Yes (Hospitalization)
  Sender: FDA-Public Use
  Company Number: US-NEUROCRINE BIOSCIENCES INC.-2023NBI03290

PATIENT

DRUGS (28)
  1. INGREZZA [Suspect]
     Active Substance: VALBENAZINE
     Indication: Tardive dyskinesia
     Dosage: 80 MILLIGRAM, QD
     Route: 048
     Dates: start: 20210610
  2. ADULT MULTIVITAMIN [Concomitant]
     Dosage: 1 TABLET BY MOUTH DAILY
     Route: 048
  3. AMLODIPINE [Concomitant]
     Active Substance: AMLODIPINE BESYLATE
     Dosage: 10 MG,1 TABLET, DAILY
     Route: 048
  4. IBUPROFEN [Concomitant]
     Active Substance: IBUPROFEN
     Indication: Pain
     Dosage: 100 MILLIGRAM, EVERY 6 HOURS AS NEEDED
     Route: 048
  5. LIDOCAINE [Concomitant]
     Active Substance: LIDOCAINE
     Indication: Pain
     Dosage: PLACE 1 PATCH ON SKIN DAILY AS NEEDED.
     Route: 061
  6. LISINOPRIL [Concomitant]
     Active Substance: LISINOPRIL
     Dosage: 10 MILLIGRAM,DAILY
     Route: 048
  7. MELATONIN [Concomitant]
     Active Substance: MELATONIN
     Dosage: 3 MILLIGRAM, NIGHTLY AS NEEDED
     Route: 048
  8. POLYETHYLENE GLYCOLS [Concomitant]
     Active Substance: POLYETHYLENE GLYCOLS
     Indication: Constipation
     Dosage: 1 DILUTED PACKET DAILY
     Route: 048
  9. QUETIAPINE [Concomitant]
     Active Substance: QUETIAPINE
     Dosage: 400 MILLIGRAM, BID
     Route: 048
  10. TERBINAFINE [Concomitant]
     Active Substance: TERBINAFINE
     Indication: Paronychia
     Dosage: 250 MILLIGRAM, DAILY FOR 82 DAYS
     Route: 048
  11. ATORVASTATIN [Concomitant]
     Active Substance: ATORVASTATIN
     Dosage: 10 MILLIGRAM
     Route: 065
     Dates: end: 2023
  12. ACETAMINOPHEN [Concomitant]
     Active Substance: ACETAMINOPHEN
     Indication: Pain
     Dosage: 325 MILLIGRAM, 2 TABLETS EVERY 6 HOURS
     Route: 048
  13. INSULIN GLARGINE [Concomitant]
     Active Substance: INSULIN GLARGINE
     Dosage: 40 UNITS PER MILLILITRE, NIGHTLY
     Route: 058
  14. INSULIN LISPRO [Concomitant]
     Active Substance: INSULIN LISPRO
     Dosage: INJECT 10 UNITS UNDER THE SKIN 3 TIMES, WITH MEALS
     Route: 048
  15. INSULIN LISPRO [Concomitant]
     Active Substance: INSULIN LISPRO
     Dosage: INJECT 0-18 UNITS UNDER THE SKIN 4 TIMES DAILY, BEFORE MEALS AND NIGHTLY
     Route: 048
  16. SENNA LEAF [Concomitant]
     Active Substance: SENNA LEAF
     Indication: Constipation
     Dosage: 8.6 MILLIGRAM 2 TABLETS DAILY
     Route: 048
  17. TRAZODONE [Concomitant]
     Active Substance: TRAZODONE HYDROCHLORIDE
     Indication: Insomnia
     Dosage: 50 MILLIGRAM, 1 TABLET, NIGHTLY AS NEEDED, MAY REPEAT
     Route: 048
  18. TRAZODONE [Concomitant]
     Active Substance: TRAZODONE HYDROCHLORIDE
     Dosage: 100 MG 1 TABLET NIGHTLY
     Route: 048
  19. BENZTROPINE [Concomitant]
     Active Substance: BENZTROPINE
     Dosage: 2 MILLIGRAM
     Route: 065
     Dates: end: 2023
  20. CALCIUM CARBONATE [Concomitant]
     Active Substance: CALCIUM CARBONATE
     Dosage: 500 MILLIGRAM
     Route: 065
     Dates: end: 2023
  21. CHOLECALCIFEROL [Concomitant]
     Active Substance: CHOLECALCIFEROL
     Dosage: 25 MICROGRAM (1,000 UNITS)
     Route: 065
     Dates: end: 2023
  22. COMBIVENT RESPIMAT [Concomitant]
     Active Substance: ALBUTEROL SULFATE\IPRATROPIUM BROMIDE
     Dosage: 100-20 MICRGRAM PUFF INHALER
     Route: 065
     Dates: end: 2023
  23. DIAZEPAM [Concomitant]
     Active Substance: DIAZEPAM
     Dosage: 5 MILLIGRAM
     Route: 065
     Dates: end: 2023
  24. DOCUSATE SODIUM [Concomitant]
     Active Substance: DOCUSATE SODIUM
     Dosage: 100 MILLIGRAM
     Route: 065
     Dates: end: 2023
  25. FAMOTIDINE [Concomitant]
     Active Substance: FAMOTIDINE
     Dosage: 20 MILLIGRAM
     Route: 065
     Dates: end: 2023
  26. HALOPERIDOL DECANOATE [Concomitant]
     Active Substance: HALOPERIDOL DECANOATE
     Dosage: 100 MILLIGRAM PER MILLILITRE
     Route: 065
     Dates: end: 2023
  27. MIRTAZAPINE [Concomitant]
     Active Substance: MIRTAZAPINE
     Dosage: 7.5 MILLIGRAM
     Route: 065
     Dates: end: 2023
  28. STIOLTO RESPIMAT [Concomitant]
     Active Substance: OLODATEROL HYDROCHLORIDE\TIOTROPIUM BROMIDE MONOHYDRATE
     Dosage: 2.5-2.5 MCG/PUFF INHALER

REACTIONS (3)
  - Psychotic disorder [Recovered/Resolved]
  - Aggression [Recovered/Resolved]
  - Irritability [Recovered/Resolved]
